FAERS Safety Report 16368663 (Version 1)
Quarter: 2019Q2

REPORT INFORMATION
  Report Type: Spontaneous
  Country: GR (occurrence: GR)
  Receive Date: 20190529
  Receipt Date: 20190529
  Transmission Date: 20190711
  Serious: Yes (Other)
  Sender: FDA-Public Use
  Company Number: GR-MYLANLABS-2019M1049912

PATIENT
  Age: 61 Year
  Sex: Male

DRUGS (3)
  1. OLANSEK [Suspect]
     Active Substance: OLANZAPINE
     Indication: ANXIETY DISORDER
     Dosage: UNK
  2. OLANZAPINE. [Suspect]
     Active Substance: OLANZAPINE
     Indication: ANXIETY DISORDER
     Dosage: 5 MILLIGRAM, QD (EACH EVENING)
     Route: 048
  3. XANAX [Concomitant]
     Active Substance: ALPRAZOLAM
     Indication: ANXIETY DISORDER
     Dosage: 2.5 MILLIGRAM, QD (EACH EVENING)
     Route: 048

REACTIONS (2)
  - Off label use [Unknown]
  - Arrhythmia [Not Recovered/Not Resolved]

NARRATIVE: CASE EVENT DATE: 201805
